FAERS Safety Report 8920358 (Version 1)
Quarter: 2012Q4

REPORT INFORMATION
  Report Type: Report from Study
  Country: US (occurrence: US)
  Receive Date: 20121121
  Receipt Date: 20121121
  Transmission Date: 20130627
  Serious: Yes (Other)
  Sender: FDA-Public Use
  Company Number: US-ABBOTT-12P-163-1008448-00

PATIENT
  Age: 33 Year
  Sex: Female

DRUGS (3)
  1. RITONAVIR [Suspect]
     Indication: HIV INFECTION
     Route: 048
     Dates: start: 20110308
  2. TRUVADA [Concomitant]
     Dates: start: 20110308
  3. PREZISTA [Concomitant]
     Route: 048
     Dates: start: 20110308

REACTIONS (1)
  - Abortion induced [Unknown]
